FAERS Safety Report 4956432-6 (Version None)
Quarter: 2006Q1

REPORT INFORMATION
  Report Type: 
  Country: None (occurrence: None)
  Receive Date: 20060328
  Receipt Date: 20060328
  Transmission Date: 20060701
  Serious: Yes (Life-Threatening, Hospitalization)
  Sender: FDA-Public Use
  Company Number: None

PATIENT
  Age: 41 Year
  Sex: Female

DRUGS (2)
  1. ZELNORM [Suspect]
     Dosage: 6 MG BID PO
     Route: 048
     Dates: start: 20060319, end: 20060322
  2. LYRICA [Suspect]
     Indication: BONE PAIN
     Dosage: 150 MG BID PO
     Route: 048
     Dates: start: 20060318, end: 20060322

REACTIONS (5)
  - ABDOMINAL PAIN [None]
  - DYSPNOEA [None]
  - HEPATIC FAILURE [None]
  - HEPATIC FIBROSIS [None]
  - HEPATIC NECROSIS [None]
